FAERS Safety Report 22672635 (Version 11)
Quarter: 2023Q4

REPORT INFORMATION
  Report Type: Report from Study
  Country: GR (occurrence: GR)
  Receive Date: 20230705
  Receipt Date: 20231128
  Transmission Date: 20240109
  Serious: Yes (Hospitalization)
  Sender: FDA-Public Use
  Company Number: GR-SA-SAC20230630000222

PATIENT
  Age: 71 Year
  Sex: Male

DRUGS (21)
  1. ISATUXIMAB [Suspect]
     Active Substance: ISATUXIMAB
     Indication: Plasma cell myeloma
     Dosage: 700 MG
     Dates: start: 20221103, end: 20221103
  2. ISATUXIMAB [Suspect]
     Active Substance: ISATUXIMAB
     Dosage: 700 MG
     Dates: start: 20230607, end: 20230607
  3. ISATUXIMAB [Suspect]
     Active Substance: ISATUXIMAB
     Dosage: UNK
     Dates: start: 20230801, end: 20230801
  4. BORTEZOMIB [Suspect]
     Active Substance: BORTEZOMIB
     Indication: Plasma cell myeloma
     Dosage: 1.2 MG
     Dates: start: 20221103, end: 20221103
  5. BORTEZOMIB [Suspect]
     Active Substance: BORTEZOMIB
     Dosage: 1.2 MG
     Dates: start: 20230613, end: 20230613
  6. BORTEZOMIB [Suspect]
     Active Substance: BORTEZOMIB
     Dosage: UNK
     Dates: start: 20230801, end: 20230801
  7. BORTEZOMIB [Suspect]
     Active Substance: BORTEZOMIB
     Dosage: 1.2 MG
     Dates: start: 20230808, end: 20230808
  8. CYCLOPHOSPHAMIDE [Suspect]
     Active Substance: CYCLOPHOSPHAMIDE
     Indication: Plasma cell myeloma
     Dosage: 540 MG
     Dates: start: 20221103, end: 20221103
  9. CYCLOPHOSPHAMIDE [Suspect]
     Active Substance: CYCLOPHOSPHAMIDE
     Dosage: 540 MG
     Dates: start: 20230613, end: 20230613
  10. CYCLOPHOSPHAMIDE [Suspect]
     Active Substance: CYCLOPHOSPHAMIDE
     Dosage: UNK
     Dates: start: 20230801, end: 20230801
  11. DEXAMETHASONE [Suspect]
     Active Substance: DEXAMETHASONE
     Indication: Plasma cell myeloma
     Dosage: 40 MG
     Dates: start: 20221103, end: 20221103
  12. DEXAMETHASONE [Suspect]
     Active Substance: DEXAMETHASONE
     Dosage: 40 MG
     Dates: start: 20230613, end: 20230613
  13. DEXAMETHASONE [Suspect]
     Active Substance: DEXAMETHASONE
     Dosage: UNK
     Dates: start: 20230801, end: 20230801
  14. DEXAMETHASONE [Suspect]
     Active Substance: DEXAMETHASONE
     Dosage: 40 MG
     Dates: start: 20230808, end: 20230808
  15. ROSUVASTATIN CALCIUM [Concomitant]
     Active Substance: ROSUVASTATIN CALCIUM
     Dosage: 10 MG
     Dates: start: 201506
  16. LYOPRAZ [OMEPRAZOLE SODIUM] [Concomitant]
     Indication: Prophylaxis
     Dosage: 20 MG
     Dates: start: 201506
  17. VALTREX [Concomitant]
     Active Substance: VALACYCLOVIR HYDROCHLORIDE
     Indication: Prophylaxis
     Dosage: 500 MG
     Dates: start: 20221103
  18. ASPIRIN [Concomitant]
     Active Substance: ASPIRIN
     Indication: Prophylaxis
     Dosage: 100 MG
     Dates: start: 20221103
  19. LYRICA [Concomitant]
     Active Substance: PREGABALIN
     Dosage: 50 MG
     Dates: start: 20221220
  20. NEUROBION [Concomitant]
     Active Substance: CYANOCOBALAMIN\PYRIDOXINE\THIAMINE
     Dosage: UNK
     Dates: start: 20221220
  21. LEVOFLOXACIN [Concomitant]
     Active Substance: LEVOFLOXACIN
     Indication: Prophylaxis
     Dosage: 500 MG
     Dates: start: 20221103

REACTIONS (3)
  - Urinary tract infection [Recovered/Resolved]
  - Ischaemic stroke [Not Recovered/Not Resolved]
  - Pneumonia aspiration [Not Recovered/Not Resolved]

NARRATIVE: CASE EVENT DATE: 20230626
